FAERS Safety Report 9078868 (Version 1)
Quarter: 2013Q1

REPORT INFORMATION
  Report Type: Report from Study
  Country: US (occurrence: US)
  Receive Date: 20130130
  Receipt Date: 20130130
  Transmission Date: 20140127
  Serious: No
  Sender: FDA-Public Use
  Company Number: US-ABBOTT-12P-163-0960317-00

PATIENT
  Age: 50 None
  Sex: Female
  Weight: 93.52 kg

DRUGS (1)
  1. HUMIRA 40 MG/0.8 ML PEN [Suspect]
     Indication: PSORIASIS
     Route: 058
     Dates: start: 201102

REACTIONS (7)
  - Vulval disorder [Not Recovered/Not Resolved]
  - Leukoplakia [Unknown]
  - Incisional drainage [Not Recovered/Not Resolved]
  - Fatigue [Recovering/Resolving]
  - Injection site pain [Not Recovered/Not Resolved]
  - Nasopharyngitis [Recovered/Resolved]
  - Sinus disorder [Recovered/Resolved]
